FAERS Safety Report 9984806 (Version 1)
Quarter: 2014Q1

REPORT INFORMATION
  Report Type: Spontaneous
  Country: US (occurrence: US)
  Receive Date: 20140307
  Receipt Date: 20140307
  Transmission Date: 20141002
  Serious: Yes (Death, Other)
  Sender: FDA-Public Use
  Company Number: PHHY2014US024989

PATIENT
  Sex: 0

DRUGS (3)
  1. POTASSIUM CHLORIDE [Suspect]
     Route: 016
  2. DOXYCYCLINE [Suspect]
     Route: 064
  3. MISOPROSTOL [Suspect]
     Route: 064

REACTIONS (4)
  - Foetal death [Fatal]
  - Conjoined twins [Unknown]
  - Heart disease congenital [Unknown]
  - Foetal exposure during pregnancy [Unknown]
